FAERS Safety Report 9639701 (Version 2)
Quarter: 2014Q2

REPORT INFORMATION
  Report Type: Report from Study
  Country: GB (occurrence: GB)
  Receive Date: 20131023
  Receipt Date: 20140423
  Transmission Date: 20141212
  Serious: Yes (Other)
  Sender: FDA-Public Use
  Company Number: GB-AMGEN-GBRCT2013074742

PATIENT
  Age: 82 Year
  Sex: Female

DRUGS (2)
  1. ETANERCEPT [Suspect]
     Indication: RHEUMATOID ARTHRITIS
     Dosage: 25 MG, UNK
     Route: 065
     Dates: start: 20100515, end: 20100715
  2. LEFLUNOMIDE [Concomitant]
     Dosage: UNK
     Dates: start: 201007

REACTIONS (1)
  - Breast cancer [Recovered/Resolved]
